FAERS Safety Report 4280611-7 (Version None)
Quarter: 2004Q1

REPORT INFORMATION
  Report Type: 
  Country: None (occurrence: None)
  Receive Date: 20040127
  Receipt Date: 20040113
  Transmission Date: 20041129
  Serious: Yes (Hospitalization)
  Sender: FDA-Public Use
  Company Number: 2004-BP-00210BP

PATIENT
  Sex: Female

DRUGS (1)
  1. MOBIC [Suspect]
     Dosage: PO
     Route: 048

REACTIONS (1)
  - POST PROCEDURAL HAEMORRHAGE [None]
